FAERS Safety Report 21290091 (Version 5)
Quarter: 2023Q1

REPORT INFORMATION
  Report Type: Report from Study
  Country: PL (occurrence: None)
  Receive Date: 20220902
  Receipt Date: 20230126
  Transmission Date: 20230418
  Serious: Yes (Death, Hospitalization)
  Sender: FDA-Public Use
  Company Number: PL-ROCHE-3077761

PATIENT
  Age: 56 Year
  Sex: Male
  Weight: 58 kg

DRUGS (9)
  1. ATEZOLIZUMAB [Suspect]
     Active Substance: ATEZOLIZUMAB
     Indication: Metastatic renal cell carcinoma
     Dosage: START DATE OF MOST RECENT DOSE (1200 MG) OF STUDY DRUG PRIOR TO AE: 23/MAR/2022
     Route: 041
     Dates: start: 20210331
  2. CABOZANTINIB [Suspect]
     Active Substance: CABOZANTINIB
     Indication: Metastatic renal cell carcinoma
     Dosage: START DATE OF MOST RECENT DOSE OF STUDY DRUG PRIOR TO AE: 22/MAR/2022, 12/APR/2022 (20 MG)
     Route: 048
     Dates: start: 20210331
  3. IBUPROFEN [Concomitant]
     Active Substance: IBUPROFEN
     Indication: Pain
     Dosage: 1 TABLET
     Route: 048
     Dates: start: 20220307
  4. OXYCONTIN [Concomitant]
     Active Substance: OXYCODONE HYDROCHLORIDE
     Indication: Abdominal pain upper
     Route: 048
     Dates: start: 20220323
  5. NAXALGAN [Concomitant]
     Indication: Pain
     Route: 048
     Dates: start: 20220323
  6. LEVOFLOXACIN [Concomitant]
     Active Substance: LEVOFLOXACIN
     Indication: Hypothyroidism
     Dosage: 150 UG
     Route: 048
     Dates: start: 20211221
  7. THIOCODIN (POLAND) [Concomitant]
     Indication: Cough
     Dosage: 2 TABLET
     Route: 001
     Dates: start: 20220119
  8. MEGESTROL ACETATE [Concomitant]
     Active Substance: MEGESTROL ACETATE
     Indication: Decreased appetite
     Route: 048
     Dates: start: 20220119
  9. DEXKETOPROFEN\TRAMADOL [Concomitant]
     Active Substance: DEXKETOPROFEN\TRAMADOL
     Indication: Abdominal pain upper
     Route: 048
     Dates: start: 20220221

REACTIONS (2)
  - Death [Fatal]
  - Gastrointestinal haemorrhage [Recovered/Resolved]

NARRATIVE: CASE EVENT DATE: 20220413
